FAERS Safety Report 6590430-4 (Version None)
Quarter: 2010Q1

REPORT INFORMATION
  Report Type: 
  Country: None (occurrence: None)
  Receive Date: 20100219
  Receipt Date: 20100205
  Transmission Date: 20100710
  Serious: Yes (Hospitalization, Other)
  Sender: FDA-Public Use
  Company Number: GB-B.I. PHARMACEUTICALS,INC./RIDGEFIELD-2008-UK-01857UK

PATIENT
  Sex: Female
  Weight: 74 kg

DRUGS (11)
  1. APTIVUS [Suspect]
     Indication: HIV INFECTION
     Dosage: 1000 MG
     Route: 048
     Dates: start: 20060905, end: 20081023
  2. TRUVADA [Suspect]
     Indication: HIV INFECTION
     Dosage: ONCE DAILY
     Route: 048
     Dates: start: 20060905, end: 20081023
  3. ETRAVIRINE [Suspect]
     Indication: HIV INFECTION
     Dosage: 1000 MG
     Route: 048
     Dates: start: 20081023
  4. PREZISTA [Suspect]
     Indication: HIV INFECTION
     Dosage: 1200 MG
     Route: 048
     Dates: start: 20081023
  5. RALTEGRAVIR [Suspect]
     Indication: HIV INFECTION
     Dosage: 800 MG
     Route: 048
     Dates: start: 20081023
  6. RITONAVIR [Suspect]
     Indication: HIV INFECTION
     Dosage: 400 MG
     Route: 048
     Dates: start: 20060905
  7. RITONAVIR [Suspect]
     Dosage: 200 MG
     Dates: start: 20081023
  8. PREDNISOLONE [Concomitant]
  9. NOVORAPID [Concomitant]
     Indication: GESTATIONAL DIABETES
     Dates: end: 20091022
  10. ZIDOVUDINE [Concomitant]
  11. INTELENCE [Concomitant]
     Dosage: 200 MG BD

REACTIONS (4)
  - ALANINE AMINOTRANSFERASE INCREASED [None]
  - ASPARTATE AMINOTRANSFERASE INCREASED [None]
  - HEPATITIS [None]
  - PREMATURE LABOUR [None]
